FAERS Safety Report 25076735 (Version 1)
Quarter: 2025Q1

REPORT INFORMATION
  Report Type: Spontaneous
  Country: US (occurrence: US)
  Receive Date: 20250313
  Receipt Date: 20250313
  Transmission Date: 20250409
  Serious: No
  Sender: BLUEPRINT MEDICINES
  Company Number: US-Blueprint Medicines Corporation-2025-AER-00449

PATIENT
  Age: 49 Year
  Sex: Male

DRUGS (1)
  1. AYVAKIT [Suspect]
     Active Substance: AVAPRITINIB
     Indication: Mastocytoma
     Route: 048
     Dates: start: 20240621

REACTIONS (5)
  - Cognitive disorder [Recovering/Resolving]
  - Memory impairment [Unknown]
  - Dysphagia [Unknown]
  - Dyspnoea [Unknown]
  - Product dose omission issue [Unknown]
